FAERS Safety Report 5041038-3 (Version None)
Quarter: 2006Q2

REPORT INFORMATION
  Report Type: 
  Country: None (occurrence: None)
  Receive Date: 20060630
  Receipt Date: 20060630
  Transmission Date: 20061013
  Serious: Yes (Hospitalization, Other)
  Sender: FDA-Public Use
  Company Number: None

PATIENT
  Sex: Male
  Weight: 75.7507 kg

DRUGS (1)
  1. ZYPREXA [Suspect]
     Dosage: 5 MG 1 PER DAY
     Dates: start: 20060328, end: 20060609

REACTIONS (1)
  - DIABETES MELLITUS [None]
